FAERS Safety Report 17308993 (Version 1)
Quarter: 2020Q1

REPORT INFORMATION
  Report Type: Spontaneous
  Country: US (occurrence: US)
  Receive Date: 20200123
  Receipt Date: 20200123
  Transmission Date: 20200409
  Serious: Yes (Hospitalization)
  Sender: FDA-Public Use
  Company Number: None

PATIENT
  Age: 38 Year
  Sex: Female
  Weight: 82.8 kg

DRUGS (1)
  1. RITUXAN [Suspect]
     Active Substance: RITUXIMAB
     Indication: MICROSCOPIC POLYANGIITIS
     Dates: start: 20200122, end: 20200122

REACTIONS (5)
  - Feeling abnormal [None]
  - Chills [None]
  - Tremor [None]
  - Throat irritation [None]
  - Glossitis [None]

NARRATIVE: CASE EVENT DATE: 20200122
